FAERS Safety Report 26155137 (Version 1)
Quarter: 2025Q4

REPORT INFORMATION
  Report Type: Spontaneous
  Country: US (occurrence: US)
  Receive Date: 20251215
  Receipt Date: 20251215
  Transmission Date: 20260118
  Serious: Yes (Other)
  Sender: STRIDES
  Company Number: US-STRIDES ARCOLAB LIMITED-2025SP011646

PATIENT
  Sex: Female

DRUGS (24)
  1. METHOTREXATE [Suspect]
     Active Substance: METHOTREXATE
     Indication: Chronic cutaneous lupus erythematosus
     Dosage: UNK
     Route: 065
  2. METHOTREXATE [Suspect]
     Active Substance: METHOTREXATE
     Indication: Subacute cutaneous lupus erythematosus
     Dosage: 20 MILLIGRAM, ONCE A WEEK
     Route: 065
  3. PREDNISONE [Suspect]
     Active Substance: PREDNISONE
     Indication: Chronic cutaneous lupus erythematosus
     Dosage: UNK FOR FLARES
     Route: 048
  4. PREDNISONE [Suspect]
     Active Substance: PREDNISONE
     Indication: Subacute cutaneous lupus erythematosus
     Dosage: UNK ADDITIONAL COURSES
     Route: 048
  5. AZATHIOPRINE [Suspect]
     Active Substance: AZATHIOPRINE
     Indication: Chronic cutaneous lupus erythematosus
     Dosage: UNK
     Route: 065
  6. AZATHIOPRINE [Suspect]
     Active Substance: AZATHIOPRINE
     Indication: Subacute cutaneous lupus erythematosus
  7. MYCOPHENOLATE MOFETIL [Suspect]
     Active Substance: MYCOPHENOLATE MOFETIL
     Indication: Chronic cutaneous lupus erythematosus
     Dosage: UNK
     Route: 065
  8. MYCOPHENOLATE MOFETIL [Suspect]
     Active Substance: MYCOPHENOLATE MOFETIL
     Indication: Subacute cutaneous lupus erythematosus
  9. HYDROXYCHLOROQUINE SULFATE [Suspect]
     Active Substance: HYDROXYCHLOROQUINE SULFATE
     Indication: Chronic cutaneous lupus erythematosus
     Dosage: UNK
     Route: 065
  10. HYDROXYCHLOROQUINE SULFATE [Suspect]
     Active Substance: HYDROXYCHLOROQUINE SULFATE
     Indication: Subacute cutaneous lupus erythematosus
  11. DAPSONE [Suspect]
     Active Substance: DAPSONE
     Indication: Subacute cutaneous lupus erythematosus
     Dosage: UNK
     Route: 065
  12. DAPSONE [Suspect]
     Active Substance: DAPSONE
     Indication: Chronic cutaneous lupus erythematosus
  13. CLOBETASOL [Suspect]
     Active Substance: CLOBETASOL
     Indication: Chronic cutaneous lupus erythematosus
     Dosage: UNK
     Route: 061
  14. CLOBETASOL [Suspect]
     Active Substance: CLOBETASOL
     Indication: Subacute cutaneous lupus erythematosus
  15. CRISABOROLE [Suspect]
     Active Substance: CRISABOROLE
     Indication: Chronic cutaneous lupus erythematosus
     Dosage: UNK
     Route: 061
  16. CRISABOROLE [Suspect]
     Active Substance: CRISABOROLE
     Indication: Subacute cutaneous lupus erythematosus
  17. TAPINAROF [Suspect]
     Active Substance: TAPINAROF
     Indication: Chronic cutaneous lupus erythematosus
     Dosage: UNK
     Route: 061
  18. TAPINAROF [Suspect]
     Active Substance: TAPINAROF
     Indication: Subacute cutaneous lupus erythematosus
  19. RUXOLITINIB [Suspect]
     Active Substance: RUXOLITINIB
     Indication: Chronic cutaneous lupus erythematosus
     Dosage: UNK
     Route: 061
  20. RUXOLITINIB [Suspect]
     Active Substance: RUXOLITINIB
     Indication: Subacute cutaneous lupus erythematosus
  21. TACROLIMUS [Suspect]
     Active Substance: TACROLIMUS
     Indication: Chronic cutaneous lupus erythematosus
     Dosage: UNK
     Route: 061
  22. TACROLIMUS [Suspect]
     Active Substance: TACROLIMUS
     Indication: Subacute cutaneous lupus erythematosus
  23. TRIAMCINOLONE [Concomitant]
     Active Substance: TRIAMCINOLONE
     Indication: Chronic cutaneous lupus erythematosus
     Dosage: UNK
     Route: 026
  24. TRIAMCINOLONE [Concomitant]
     Active Substance: TRIAMCINOLONE
     Indication: Subacute cutaneous lupus erythematosus

REACTIONS (6)
  - Treatment failure [Unknown]
  - Therapy partial responder [Unknown]
  - Contusion [Unknown]
  - Urticaria [Unknown]
  - Headache [Unknown]
  - Off label use [Unknown]
